FAERS Safety Report 8476591-0 (Version None)
Quarter: 2012Q2

REPORT INFORMATION
  Report Type: 
  Country: None (occurrence: None)
  Receive Date: 20120622
  Receipt Date: 20120619
  Transmission Date: 20120825
  Serious: Yes (Hospitalization)
  Sender: FDA-Public Use
  Company Number: 2012SP009787

PATIENT
  Sex: Male

DRUGS (6)
  1. INTRON A (INTERFERON ALFA-2B) [Suspect]
     Indication: MALIGNANT MELANOMA
     Dosage: 40 MIU;;IV, 30 MIU,,IV,
     Route: 042
     Dates: start: 20111117, end: 20111202
  2. INTRON A (INTERFERON ALFA-2B) [Suspect]
     Indication: MALIGNANT MELANOMA
     Dosage: 40 MIU;;IV, 30 MIU,,IV,
     Route: 042
     Dates: start: 20111107
  3. LEVOTHYROXINE SODIUM [Concomitant]
  4. INTRON A [Suspect]
     Indication: MALIGNANT MELANOMA
     Dosage: 20 MIU; UNK;, 15 MIU;TIW;, 10 MIU;TIW, 10 MIU,TIW;
     Dates: start: 20120113, end: 20120125
  5. INTRON A [Suspect]
     Indication: MALIGNANT MELANOMA
     Dosage: 20 MIU; UNK;, 15 MIU;TIW;, 10 MIU;TIW, 10 MIU,TIW;
     Dates: start: 20120213
  6. INTRON A [Suspect]
     Indication: MALIGNANT MELANOMA
     Dosage: 20 MIU; UNK;, 15 MIU;TIW;, 10 MIU;TIW, 10 MIU,TIW;
     Dates: start: 20111205

REACTIONS (14)
  - TREATMENT NONCOMPLIANCE [None]
  - POST PROCEDURAL INFECTION [None]
  - CHILLS [None]
  - LYMPH NODE PAIN [None]
  - SWELLING [None]
  - RASH PRURITIC [None]
  - LIVER FUNCTION TEST ABNORMAL [None]
  - LYMPHOEDEMA [None]
  - PAIN [None]
  - ASTHENIA [None]
  - RADIATION SKIN INJURY [None]
  - PYREXIA [None]
  - FATIGUE [None]
  - NAUSEA [None]
